FAERS Safety Report 15929781 (Version 5)
Quarter: 2020Q2

REPORT INFORMATION
  Report Type: Spontaneous
  Country: CA (occurrence: CA)
  Receive Date: 20190206
  Receipt Date: 20200416
  Transmission Date: 20200713
  Serious: Yes (Hospitalization, Other)
  Sender: FDA-Public Use
  Company Number: CA-ASCEND THERAPEUTICS-2062251

PATIENT
  Age: 52 Year
  Sex: Female

DRUGS (12)
  1. LORATADINE. [Suspect]
     Active Substance: LORATADINE
     Route: 048
  2. THYROID [Suspect]
     Active Substance: LEVOTHYROXINE\LIOTHYRONINE
  3. ESTROGEL [Suspect]
     Active Substance: ESTRADIOL
     Indication: PRODUCT USED FOR UNKNOWN INDICATION
  4. PROMETRIUM [Suspect]
     Active Substance: PROGESTERONE
  5. DEHYDROEPIANDROSTERONE (PRASTERONE)?PRODUCT USED FOR UNKNOWN INDICATIO [Suspect]
     Active Substance: PRASTERONE
     Route: 067
  6. BUDESONIDE. [Suspect]
     Active Substance: BUDESONIDE
  7. PRASTERONE (PRASTERONE)?INDICATED USE: MENOPAUSE [Suspect]
     Active Substance: PRASTERONE
     Route: 067
  8. PROGESTERONE. [Suspect]
     Active Substance: PROGESTERONE
     Route: 067
  9. CRINONE [Suspect]
     Active Substance: PROGESTERONE
  10. CLARITIN [Suspect]
     Active Substance: LORATADINE
     Route: 048
  11. GLICLAZIDE [Concomitant]
     Active Substance: GLICLAZIDE
  12. CLARITIN-D (PSUEDOEPHEDRINE SULFATE, LORATADINE) [Concomitant]
     Route: 048

REACTIONS (10)
  - Head discomfort [Unknown]
  - Swelling face [Unknown]
  - Periorbital oedema [Unknown]
  - Tinnitus [Unknown]
  - Product use in unapproved indication [None]
  - Butterfly rash [Unknown]
  - Feeling hot [Unknown]
  - Cellulitis [Unknown]
  - Photosensitivity reaction [Unknown]
  - Rash [Unknown]
